FAERS Safety Report 4980469-4 (Version None)
Quarter: 2006Q2

REPORT INFORMATION
  Report Type: 
  Country: None (occurrence: None)
  Receive Date: 20060418
  Receipt Date: 20060405
  Transmission Date: 20061013
  Serious: Yes (Other)
  Sender: FDA-Public Use
  Company Number: 2006031574

PATIENT
  Sex: Female

DRUGS (10)
  1. NEURONTIN [Suspect]
     Indication: ILL-DEFINED DISORDER
  2. XANAX [Suspect]
     Indication: ILL-DEFINED DISORDER
  3. TOPAMAX [Suspect]
     Indication: ILL-DEFINED DISORDER
  4. WELLBUTRIN [Suspect]
     Indication: ILL-DEFINED DISORDER
  5. TYLENOL W/ CODEINE NO. 3 [Suspect]
     Indication: ILL-DEFINED DISORDER
  6. NAPROSYN [Suspect]
     Indication: ILL-DEFINED DISORDER
  7. ATACAND [Concomitant]
  8. PLAVIX [Concomitant]
  9. LASIX [Concomitant]
  10. PREVACID [Concomitant]

REACTIONS (17)
  - CRYING [None]
  - DECREASED APPETITE [None]
  - DECREASED INTEREST [None]
  - DEPRESSED MOOD [None]
  - DEPRESSION [None]
  - DISTURBANCE IN ATTENTION [None]
  - FEELING ABNORMAL [None]
  - HALLUCINATION, AUDITORY [None]
  - ILL-DEFINED DISORDER [None]
  - INITIAL INSOMNIA [None]
  - INSOMNIA [None]
  - LOSS OF CONSCIOUSNESS [None]
  - MARITAL PROBLEM [None]
  - MOOD SWINGS [None]
  - OFF LABEL USE [None]
  - SUICIDAL IDEATION [None]
  - SUICIDE ATTEMPT [None]
